FAERS Safety Report 7808397-7 (Version None)
Quarter: 2011Q4

REPORT INFORMATION
  Report Type: 
  Country: None (occurrence: None)
  Receive Date: 20111011
  Receipt Date: 20111011
  Transmission Date: 20120403
  Serious: No
  Sender: FDA-Public Use
  Company Number: None

PATIENT
  Sex: Female
  Weight: 136.5327 kg

DRUGS (1)
  1. PROPRANOLOL HYDROCHLORIDE [Suspect]
     Indication: HYPERTENSION
     Dosage: 120 MG 1 DAY ORAL
     Route: 048
     Dates: start: 20110101

REACTIONS (2)
  - MIGRAINE [None]
  - PRODUCT QUALITY ISSUE [None]
